FAERS Safety Report 18319269 (Version 1)
Quarter: 2020Q3

REPORT INFORMATION
  Report Type: Spontaneous
  Country: PT (occurrence: PT)
  Receive Date: 20200928
  Receipt Date: 20200928
  Transmission Date: 20201103
  Serious: Yes (Other)
  Sender: FDA-Public Use
  Company Number: NVSC2020PT257521

PATIENT
  Age: 53 Year
  Sex: Male

DRUGS (1)
  1. VOLTAREN RAPID [Suspect]
     Active Substance: DICLOFENAC POTASSIUM
     Indication: PAIN
     Dosage: 50 MG, 1 COMP EM SOS
     Route: 048

REACTIONS (1)
  - Aphthous ulcer [Recovered/Resolved]
